FAERS Safety Report 19402788 (Version 1)
Quarter: 2021Q2

REPORT INFORMATION
  Report Type: Report from Study
  Country: BE (occurrence: NL)
  Receive Date: 20210610
  Receipt Date: 20210610
  Transmission Date: 20210717
  Serious: Yes (Hospitalization, Congenital Anomaly)
  Sender: FDA-Public Use
  Company Number: NL-TEVA-2021-NL-1920009

PATIENT

DRUGS (5)
  1. HYDROXYDAUNORUBICIN [Suspect]
     Active Substance: DOXORUBICIN
     Indication: DRUG THERAPY
     Dosage: MATERNAL CYCLICAL THERAPY; RECEIVED 5 CYCLES OF THE REGIMEN EVERY 3 WEEKS
     Route: 064
  2. PREDNISONE. [Suspect]
     Active Substance: PREDNISONE
     Indication: DRUG THERAPY
     Dosage: MATERNAL CYCLICAL THERAPY; RECEIVED 5 CYCLES OF THE REGIMEN EVERY 3 WEEKS
     Route: 064
  3. CYCLOPHOSPHAMIDE. [Suspect]
     Active Substance: CYCLOPHOSPHAMIDE
     Indication: DRUG THERAPY
     Dosage: MATERNAL CYCLICAL THERAPY; RECEIVED 5 CYCLES OF THE REGIMEN EVERY 3 WEEKS
     Route: 064
  4. RITUXIMAB. [Suspect]
     Active Substance: RITUXIMAB
     Indication: DRUG THERAPY
     Dosage: MATERNAL CYCLICAL THERAPY; RECEIVED 5 CYCLES OF THE REGIMEN EVERY 3 WEEKS
     Route: 064
  5. VINCRISTINE [Suspect]
     Active Substance: VINCRISTINE
     Indication: DRUG THERAPY
     Dosage: MATERNAL CYCLICAL THERAPY; RECEIVED 5 CYCLES OF THE REGIMEN EVERY 3 WEEKS
     Route: 064

REACTIONS (3)
  - Foetal exposure during pregnancy [Unknown]
  - Ventricular septal defect [Unknown]
  - Atrial septal defect [Unknown]
